FAERS Safety Report 14748370 (Version 1)
Quarter: 2018Q2

REPORT INFORMATION
  Report Type: Spontaneous
  Country: US (occurrence: US)
  Receive Date: 20180411
  Receipt Date: 20180411
  Transmission Date: 20180711
  Serious: No
  Sender: FDA-Public Use
  Company Number: US-AMGEN-USASP2017150360

PATIENT
  Age: 71 Year
  Sex: Female

DRUGS (4)
  1. RALOXIFENE. [Concomitant]
     Active Substance: RALOXIFENE
     Dosage: 60 MG, QD
  2. PROLIA [Suspect]
     Active Substance: DENOSUMAB
     Indication: OSTEOPOROSIS POSTMENOPAUSAL
     Dosage: UNK UNK, Q6MO
     Route: 065
  3. LEVOTHYROXINE. [Concomitant]
     Active Substance: LEVOTHYROXINE
  4. VITAMIN D3 [Concomitant]
     Active Substance: CHOLECALCIFEROL
     Dosage: 2000 IU, UNK

REACTIONS (2)
  - Muscle spasms [Unknown]
  - Poor quality sleep [Unknown]

NARRATIVE: CASE EVENT DATE: 2016
